FAERS Safety Report 23343244 (Version 1)
Quarter: 2023Q4

REPORT INFORMATION
  Report Type: Spontaneous
  Country: US (occurrence: US)
  Receive Date: 20231227
  Receipt Date: 20231227
  Transmission Date: 20240110
  Serious: No
  Sender: FDA-Public Use
  Company Number: US-UPSHER-SMITH LABORATORIES, LLC-2023USL00483

PATIENT
  Sex: Female
  Weight: 63.492 kg

DRUGS (16)
  1. KLOR-CON M [Suspect]
     Active Substance: POTASSIUM CHLORIDE
     Indication: Electrolyte substitution therapy
     Dosage: 20 MEQ, 2X/DAY
     Route: 048
  2. BUPROPION [Concomitant]
     Active Substance: BUPROPION
  3. FUROSEMIDE [Concomitant]
     Active Substance: FUROSEMIDE
  4. AMLODIPINE [Concomitant]
     Active Substance: AMLODIPINE BESYLATE
  5. ELIQUIS [Concomitant]
     Active Substance: APIXABAN
  6. RALOXIFENE [Concomitant]
     Active Substance: RALOXIFENE
  7. OLMESARTAN [Concomitant]
     Active Substance: OLMESARTAN
  8. PANTOPRAZOLE [Concomitant]
     Active Substance: PANTOPRAZOLE
  9. PROPRANOLOL [Concomitant]
     Active Substance: PROPRANOLOL HYDROCHLORIDE
  10. SPIRONOLACTONE [Concomitant]
     Active Substance: SPIRONOLACTONE
  11. VITAMINS NOS [Concomitant]
     Active Substance: VITAMINS
  12. VITAMIN D NOS [Concomitant]
     Active Substance: VITAMIN D NOS
  13. CALCIUM + MAGNESIUM + ZINK [Concomitant]
  14. ATORVASTATIN [Concomitant]
     Active Substance: ATORVASTATIN
  15. AMIODARONE [Concomitant]
     Active Substance: AMIODARONE
  16. SYNTHROID [Concomitant]
     Active Substance: LEVOTHYROXINE SODIUM

REACTIONS (2)
  - Foreign body in mouth [Not Recovered/Not Resolved]
  - Product use complaint [Not Recovered/Not Resolved]
